FAERS Safety Report 6424769-X (Version None)
Quarter: 2009Q4

REPORT INFORMATION
  Report Type: 
  Country: None (occurrence: None)
  Receive Date: 20091103
  Receipt Date: 20091023
  Transmission Date: 20100525
  Serious: Yes (Death, Hospitalization, Other)
  Sender: FDA-Public Use
  Company Number: US-AMGEN-US362743

PATIENT
  Sex: Male
  Weight: 86.3 kg

DRUGS (14)
  1. NPLATE [Suspect]
     Indication: IDIOPATHIC THROMBOCYTOPENIC PURPURA
     Route: 058
     Dates: start: 20081226, end: 20090107
  2. NPLATE [Suspect]
     Route: 058
     Dates: start: 20081226, end: 20081226
  3. NPLATE [Suspect]
     Route: 058
     Dates: start: 20090102, end: 20090107
  4. PREDNISONE [Concomitant]
     Route: 048
     Dates: start: 20081119, end: 20090119
  5. ZYTEC [Concomitant]
     Route: 048
  6. LOVASTATIN [Concomitant]
     Route: 048
  7. HYZAAR [Concomitant]
     Route: 048
  8. IBUPROFEN [Concomitant]
     Route: 048
  9. METAMUCIL [Concomitant]
  10. MULTI-VITAMINS [Concomitant]
  11. ADVAIR DISKUS 100/50 [Concomitant]
     Route: 055
  12. PRILOSEC [Concomitant]
     Route: 048
  13. FOLIC ACID [Concomitant]
  14. AMICAR [Concomitant]
     Route: 048
     Dates: start: 20081229

REACTIONS (8)
  - CLOSTRIDIAL INFECTION [None]
  - CONFUSIONAL STATE [None]
  - EVANS SYNDROME [None]
  - HYPOTENSION [None]
  - PANCYTOPENIA [None]
  - PHLEBITIS SUPERFICIAL [None]
  - RENAL FAILURE ACUTE [None]
  - SEPSIS [None]
